FAERS Safety Report 4861840-8 (Version None)
Quarter: 2005Q4

REPORT INFORMATION
  Report Type: 
  Country: None (occurrence: None)
  Receive Date: 20051130
  Receipt Date: 20050311
  Transmission Date: 20060501
  Serious: Yes (Other)
  Sender: FDA-Public Use
  Company Number: 2005043985

PATIENT
  Sex: 0

DRUGS (1)
  1. ZYVOX [Suspect]
     Indication: ILL-DEFINED DISORDER

REACTIONS (2)
  - LEUKOPENIA [None]
  - THROMBOCYTOPENIA [None]
